FAERS Safety Report 10230296 (Version 1)
Quarter: 2014Q2

REPORT INFORMATION
  Report Type: Spontaneous
  Country: CA (occurrence: CA)
  Receive Date: 20140611
  Receipt Date: 20140611
  Transmission Date: 20141212
  Serious: Yes (Other)
  Sender: FDA-Public Use
  Company Number: CA-INCYTE CORPORATION-2014IN001546

PATIENT
  Age: 61 Year
  Sex: Male

DRUGS (2)
  1. JAKAVI [Suspect]
     Dosage: 15 MG, BID
     Route: 048
     Dates: start: 201301, end: 20140422
  2. JAKAVI [Suspect]
     Dosage: UNK
     Route: 048
     Dates: start: 201405

REACTIONS (3)
  - Bone marrow failure [Unknown]
  - Gastrointestinal haemorrhage [Unknown]
  - Diverticular perforation [Unknown]
